FAERS Safety Report 9207281 (Version 1)
Quarter: 2013Q1

REPORT INFORMATION
  Report Type: Spontaneous
  Country: US (occurrence: None)
  Receive Date: 20120718
  Receipt Date: 20120718
  Transmission Date: 20140127
  Serious: Yes (Other)
  Sender: FDA-Public Use
  Company Number: 163-21880-12040867

PATIENT
  Age: 89 Year
  Sex: Male

DRUGS (2)
  1. REVLIMID [Suspect]
     Indication: MYELODYSPLASTIC SYNDROME
     Dosage: X 21 DAYS
     Route: 048
     Dates: start: 20120216
  2. VIDAZA [Suspect]
     Indication: MYELODYSPLASTIC SYNDROME
     Dosage: X5 REPEAT MONTHLY
     Route: 048
     Dates: start: 201109, end: 20120316

REACTIONS (2)
  - Anaemia [None]
  - White blood cell count increased [None]
